FAERS Safety Report 15481675 (Version 2)
Quarter: 2018Q4

REPORT INFORMATION
  Report Type: Report from Study
  Country: None (occurrence: BR)
  Receive Date: 20181010
  Receipt Date: 20181112
  Transmission Date: 20190205
  Serious: Yes (Hospitalization, Other)
  Sender: FDA-Public Use
  Company Number: BR-ABBVIE-18K-020-2511416-00

PATIENT
  Age: 38 Year
  Sex: Female
  Weight: 92 kg

DRUGS (4)
  1. PYRIDOSTIGMINE [Concomitant]
     Active Substance: PYRIDOSTIGMINE
     Indication: PRODUCT USED FOR UNKNOWN INDICATION
  2. LEFLUNOMIDE. [Concomitant]
     Active Substance: LEFLUNOMIDE
     Indication: ARTHRITIS
  3. HUMIRA [Suspect]
     Active Substance: ADALIMUMAB
     Indication: RHEUMATOID ARTHRITIS
     Route: 058
     Dates: start: 20171127, end: 2018
  4. PREDNISONE. [Concomitant]
     Active Substance: PREDNISONE
     Indication: RHEUMATOID ARTHRITIS

REACTIONS (12)
  - Post procedural discharge [Unknown]
  - Seroma [Unknown]
  - Influenza [Unknown]
  - Abdominal hernia [Recovered/Resolved]
  - Malaise [Unknown]
  - Pain in extremity [Unknown]
  - Influenza [Unknown]
  - Myasthenia gravis [Not Recovered/Not Resolved]
  - Infection [Recovered/Resolved]
  - Pain in extremity [Recovering/Resolving]
  - Abscess [Unknown]
  - Back pain [Recovering/Resolving]

NARRATIVE: CASE EVENT DATE: 201712
